FAERS Safety Report 6165314-6 (Version None)
Quarter: 2009Q2

REPORT INFORMATION
  Report Type: 
  Country: None (occurrence: None)
  Receive Date: 20090421
  Receipt Date: 20090421
  Transmission Date: 20091009
  Serious: Yes (Hospitalization)
  Sender: FDA-Public Use
  Company Number: None

PATIENT
  Sex: Female
  Weight: 79.3795 kg

DRUGS (2)
  1. ETHINYL ESTRADIOL TAB [Suspect]
     Indication: CONTRACEPTION
     Dosage: 1 TABLET -COMBINED PILL- DAILY PO
     Route: 048
  2. LEVONORGESTREL [Suspect]
     Dosage: 1 TABLET -COMBINED PILL- DAILY PO
     Route: 048

REACTIONS (1)
  - PULMONARY EMBOLISM [None]
